FAERS Safety Report 12180945 (Version 2)
Quarter: 2016Q1

REPORT INFORMATION
  Report Type: Spontaneous
  Country: US (occurrence: US)
  Receive Date: 20160315
  Receipt Date: 20160330
  Transmission Date: 20160526
  Serious: No
  Sender: FDA-Public Use
  Company Number: US-BAYER-2016-036434

PATIENT
  Sex: Male

DRUGS (1)
  1. DESONATE [Suspect]
     Active Substance: DESONIDE
     Indication: PSORIASIS
     Dosage: 1 DF, QD
     Route: 061
     Dates: start: 2011

REACTIONS (5)
  - Product use issue [None]
  - Expired product administered [None]
  - Skin disorder [None]
  - Psoriasis [None]
  - Therapeutic response unexpected [None]
